FAERS Safety Report 6060674-9 (Version None)
Quarter: 2009Q1

REPORT INFORMATION
  Report Type: 
  Country: None (occurrence: None)
  Receive Date: 20090130
  Receipt Date: 20090130
  Transmission Date: 20090719
  Serious: No
  Sender: FDA-Public Use
  Company Number: None

PATIENT
  Sex: Female
  Weight: 96.6162 kg

DRUGS (2)
  1. HYDROCODONE BITARTRATE + ACETAMINOPHEN [Suspect]
     Dosage: 10/500 ONCE BID PO
     Route: 048
     Dates: start: 20090101
  2. LORTAB [Suspect]

REACTIONS (2)
  - NAUSEA [None]
  - VOMITING [None]
